FAERS Safety Report 23038365 (Version 2)
Quarter: 2024Q1

REPORT INFORMATION
  Report Type: Spontaneous
  Country: US (occurrence: US)
  Receive Date: 20231006
  Receipt Date: 20240313
  Transmission Date: 20240410
  Serious: No
  Sender: FDA-Public Use
  Company Number: US-GSKCCFUS-Case-01815041_AE-101577

PATIENT
  Sex: Female

DRUGS (2)
  1. BENLYSTA [Suspect]
     Active Substance: BELIMUMAB
     Indication: Systemic lupus erythematosus
     Dosage: UNK
     Dates: start: 20230828
  2. BENLYSTA [Suspect]
     Active Substance: BELIMUMAB
     Dosage: 200 MG, WE

REACTIONS (8)
  - Oropharyngeal pain [Recovering/Resolving]
  - Feeling hot [Recovering/Resolving]
  - Weight increased [Unknown]
  - Arthralgia [Unknown]
  - Insomnia [Unknown]
  - Panic attack [Unknown]
  - Nasopharyngitis [Unknown]
  - Product dose omission issue [Unknown]

NARRATIVE: CASE EVENT DATE: 20230101
